FAERS Safety Report 9779876 (Version 1)
Quarter: 2013Q4

REPORT INFORMATION
  Report Type: Spontaneous
  Country: US (occurrence: US)
  Receive Date: 20131223
  Receipt Date: 20131223
  Transmission Date: 20140711
  Serious: No
  Sender: FDA-Public Use
  Company Number: US-009507513-1312USA003833

PATIENT
  Sex: Female

DRUGS (3)
  1. DULERA [Suspect]
     Dosage: 2 DF, BID
     Route: 055
  2. SPIRIVA [Concomitant]
  3. FLOVENT [Concomitant]

REACTIONS (4)
  - Product quality issue [Unknown]
  - Inappropriate schedule of drug administration [Unknown]
  - Wheezing [Unknown]
  - Dyspnoea [Unknown]
